FAERS Safety Report 25744536 (Version 1)
Quarter: 2025Q3

REPORT INFORMATION
  Report Type: Spontaneous
  Country: US (occurrence: US)
  Receive Date: 20250901
  Receipt Date: 20250901
  Transmission Date: 20251021
  Serious: Yes (Other)
  Sender: CSL BEHRING
  Company Number: US-BEH-2025216830

PATIENT
  Age: 76 Year
  Sex: Female

DRUGS (3)
  1. ANDEMBRY [Suspect]
     Active Substance: GARADACIMAB-GXII
     Indication: Hereditary angioedema
     Dosage: 200 MG, QMT
     Route: 058
     Dates: start: 202508
  2. ICATIBANT ACETATE [Concomitant]
     Active Substance: ICATIBANT ACETATE
  3. TAKHZYRO [Concomitant]
     Active Substance: LANADELUMAB-FLYO

REACTIONS (1)
  - Hereditary angioedema [Recovered/Resolved]

NARRATIVE: CASE EVENT DATE: 20250819
